FAERS Safety Report 4309022-2 (Version None)
Quarter: 2004Q1

REPORT INFORMATION
  Report Type: 
  Country: None (occurrence: None)
  Receive Date: 20040301
  Receipt Date: 20040211
  Transmission Date: 20041129
  Serious: Yes (Other)
  Sender: FDA-Public Use
  Company Number: 2004BL001236

PATIENT
  Age: 81 Year
  Sex: Female

DRUGS (3)
  1. TROPICACYL [Suspect]
     Indication: OPHTHALMOLOGICAL EXAMINATION
     Dosage: UNKNOWN
     Route: 065
  2. BENOXINATE HCL [Suspect]
     Indication: OPHTHALMOLOGICAL EXAMINATION
  3. MINIMS LIGNOCAINE + FLUORESCEIN (MINIMS LIGNOCAINE + FLUORESCEIN) [Suspect]
     Indication: OPHTHALMOLOGICAL EXAMINATION
     Dosage: UNKNOWN
     Route: 065

REACTIONS (1)
  - CEREBROVASCULAR ACCIDENT [None]
